FAERS Safety Report 20345952 (Version 2)
Quarter: 2022Q1

REPORT INFORMATION
  Report Type: Spontaneous
  Country: FR (occurrence: FR)
  Receive Date: 20220118
  Receipt Date: 20220124
  Transmission Date: 20220423
  Serious: Yes (Hospitalization, Other)
  Sender: FDA-Public Use
  Company Number: None

PATIENT
  Age: 90 Year
  Sex: Female

DRUGS (10)
  1. ELIQUIS [Suspect]
     Active Substance: APIXABAN
     Indication: Tachyarrhythmia
     Dosage: 2.5 MILLIGRAM, BID
     Route: 048
     Dates: start: 2020, end: 20211115
  2. ELIQUIS [Suspect]
     Active Substance: APIXABAN
     Indication: Cerebrovascular accident prophylaxis
  3. TAHOR [Suspect]
     Active Substance: ATORVASTATIN CALCIUM
     Indication: Hypercholesterolaemia
     Dosage: 10 MILLIGRAM, QD
     Route: 048
  4. PHOSPHORUS [Concomitant]
     Active Substance: PHOSPHORUS
     Indication: Homeopathy
     Dosage: 5 GRANULES DAILY
     Route: 048
  5. NEBIVOLOL [Concomitant]
     Active Substance: NEBIVOLOL
     Indication: Hypertension
     Dosage: 2.5 MILLIGRAM, QD
     Route: 048
  6. VILDAGLIPTIN [Concomitant]
     Active Substance: VILDAGLIPTIN
     Indication: Type 2 diabetes mellitus
     Dosage: 50 MILLIGRAM, QD
     Route: 048
  7. LEVOTHYROXINE [Concomitant]
     Active Substance: LEVOTHYROXINE
     Indication: Hypothyroidism
     Dosage: 75 MICROGRAM, QD
     Route: 048
  8. CHOLECALCIFEROL [Concomitant]
     Active Substance: CHOLECALCIFEROL
     Indication: Vitamin supplementation
     Dosage: 50000 INTERNATIONAL UNIT, Q3MO
     Route: 048
  9. CONIUM MACULATUM FLOWERING TOP [Concomitant]
     Active Substance: CONIUM MACULATUM FLOWERING TOP
     Indication: Homeopathy
     Dosage: 5 GRANULES DAILY
     Route: 048
  10. INFLUENZINUM [HOMEOPATHICS NOS] [Concomitant]
     Indication: Homeopathy
     Dosage: 1 DOSAGE FORM, WEEKLY
     Route: 048

REACTIONS (1)
  - Cerebral haematoma [Recovering/Resolving]

NARRATIVE: CASE EVENT DATE: 20211115
